FAERS Safety Report 5837981-5 (Version None)
Quarter: 2008Q3

REPORT INFORMATION
  Report Type: 
  Country: None (occurrence: None)
  Receive Date: 20080808
  Receipt Date: 20080117
  Transmission Date: 20090109
  Serious: No
  Sender: FDA-Public Use
  Company Number: A0703867A

PATIENT
  Age: 90 Year
  Sex: Female

DRUGS (8)
  1. PAXIL [Suspect]
     Indication: DEPRESSION
     Dosage: 20MG PER DAY
     Route: 048
  2. LOTREL [Concomitant]
  3. IMDUR [Concomitant]
  4. THYROID MEDICATION [Concomitant]
  5. CALCIUM [Concomitant]
  6. VITAMIN TAB [Concomitant]
  7. LIPITOR [Concomitant]
  8. GABAPENTIN [Concomitant]

REACTIONS (2)
  - DEPRESSION [None]
  - SOCIAL AVOIDANT BEHAVIOUR [None]
